FAERS Safety Report 12509477 (Version 1)
Quarter: 2016Q2

REPORT INFORMATION
  Report Type: Spontaneous
  Country: US (occurrence: US)
  Receive Date: 20160629
  Receipt Date: 20160629
  Transmission Date: 20160815
  Serious: No
  Sender: FDA-Public Use
  Company Number: US-RECKITT BENCKISER HEALTHCARE INT LIMITED-RB-09228-2015

PATIENT
  Age: 52 Year
  Sex: Female

DRUGS (1)
  1. MUCINEX [Suspect]
     Active Substance: GUAIFENESIN
     Indication: LOWER RESPIRATORY TRACT INFECTION
     Dosage: 1 DF, BID
     Route: 065

REACTIONS (2)
  - Expired product administered [Unknown]
  - Drug ineffective [Not Recovered/Not Resolved]
